FAERS Safety Report 10853248 (Version 1)
Quarter: 2015Q1

REPORT INFORMATION
  Report Type: Spontaneous
  Country: JP (occurrence: JP)
  Receive Date: 20150223
  Receipt Date: 20150223
  Transmission Date: 20150721
  Serious: Yes (Other)
  Sender: FDA-Public Use
  Company Number: JP-CIPLA LTD.-2015JP01282

PATIENT

DRUGS (2)
  1. GEMCITABINE [Suspect]
     Active Substance: GEMCITABINE\GEMCITABINE HYDROCHLORIDE
     Indication: PANCREATIC CARCINOMA
     Dosage: 1000 MG/M2 30 MIN IV INFUSION ONCE WEEKLY FOR 3 WEEKS
     Route: 042
  2. AXITINIB [Suspect]
     Active Substance: AXITINIB
     Indication: PANCREATIC CARCINOMA
     Dosage: 5 MG TWICE DAILY
     Route: 048

REACTIONS (1)
  - Neoplasm progression [Unknown]
